FAERS Safety Report 10390042 (Version 1)
Quarter: 2014Q1

REPORT INFORMATION
  Report Type: Spontaneous
  Country: US (occurrence: None)
  Receive Date: 20140306
  Receipt Date: 20140306
  Transmission Date: 20141002
  Serious: Yes (Other)
  Sender: FDA-Public Use
  Company Number: 163-21880-13012569

PATIENT
  Age: 76 Year
  Sex: Male
  Weight: 77.57 kg

DRUGS (6)
  1. REVLIMID (LENALIDOMIDE)(25 MILLIGRAM, CAPSULES) [Suspect]
     Route: 048
     Dates: start: 201212
  2. GABAPENTIN(GABAPENTIN)(UNKNOWN) [Concomitant]
  3. ALLEGRA(FEXOFENADINE HYDROCHLORIDE)(UNKNOWN) [Concomitant]
  4. OXYCODONE(OXYCODONE)(UNKNOWN)? [Concomitant]
  5. BACTRIM DS(BACTRIM)(UNKNOWN)? [Concomitant]
  6. ASA(ACETYLSALICYLIC ACID)(UNKNOWN) [Concomitant]

REACTIONS (3)
  - Hernia [None]
  - Toxicity to various agents [None]
  - Neutropenia [None]
